FAERS Safety Report 17657894 (Version 8)
Quarter: 2021Q1

REPORT INFORMATION
  Report Type: Report from Study
  Country: US (occurrence: US)
  Receive Date: 20200411
  Receipt Date: 20210125
  Transmission Date: 20210419
  Serious: Yes (Other)
  Sender: FDA-Public Use
  Company Number: NVSC2020US097548

PATIENT
  Age: 49 Year
  Sex: Male

DRUGS (4)
  1. MAYZENT [Suspect]
     Active Substance: SIPONIMOD
     Indication: MULTIPLE SCLEROSIS
     Dosage: 2 MG, QD
     Route: 048
     Dates: start: 20200305
  2. MAYZENT [Suspect]
     Active Substance: SIPONIMOD
     Dosage: 1 MG, QD
     Route: 048
  3. MAYZENT [Suspect]
     Active Substance: SIPONIMOD
     Dosage: 2 MG, QD
     Route: 048
     Dates: start: 20200316
  4. MAYZENT [Suspect]
     Active Substance: SIPONIMOD
     Dosage: 1 MG, QD
     Route: 048
     Dates: start: 20200814, end: 20200814

REACTIONS (13)
  - Headache [Unknown]
  - Urinary retention [Unknown]
  - Bladder discomfort [Unknown]
  - Pollakiuria [Unknown]
  - Tooth disorder [Unknown]
  - Tooth fracture [Unknown]
  - Hyperaesthesia teeth [Unknown]
  - Drug ineffective [Unknown]
  - Gait disturbance [Unknown]
  - Muscular weakness [Unknown]
  - Dental paraesthesia [Unknown]
  - Abdominal discomfort [Unknown]
  - Muscle spasms [Unknown]

NARRATIVE: CASE EVENT DATE: 20200308
